FAERS Safety Report 8988343 (Version 1)
Quarter: 2012Q4

REPORT INFORMATION
  Report Type: Spontaneous
  Country: US (occurrence: None)
  Receive Date: 20121220
  Receipt Date: 20121220
  Transmission Date: 20130627
  Serious: Yes (Other)
  Sender: FDA-Public Use
  Company Number: None

PATIENT
  Age: 56 Year
  Sex: Male
  Weight: 83.92 kg

DRUGS (4)
  1. TIZANIDINE [Suspect]
     Indication: MUSCLE SPASMS
     Dosage: 1.5 tablet
     Route: 048
     Dates: start: 20121019, end: 20121218
  2. TIZANIDINE [Suspect]
     Indication: NEUROPATHY
     Dosage: 1.5 tablet
     Route: 048
     Dates: start: 20121019, end: 20121218
  3. AVELOX [Suspect]
     Indication: PNEUMONITIS
     Route: 048
     Dates: start: 20121015, end: 20121218
  4. AVELOX [Suspect]
     Indication: PNEUMONIA
     Route: 048
     Dates: start: 20121015, end: 20121218

REACTIONS (4)
  - Dysphagia [None]
  - Aspiration [None]
  - Memory impairment [None]
  - Cognitive disorder [None]
